FAERS Safety Report 7176705-9 (Version None)
Quarter: 2010Q4

REPORT INFORMATION
  Report Type: 
  Country: None (occurrence: None)
  Receive Date: 20101216
  Receipt Date: 20101216
  Transmission Date: 20110411
  Serious: No
  Sender: FDA-Public Use
  Company Number: None

PATIENT
  Age: 68 Year

DRUGS (1)
  1. ZOSYN [Suspect]
     Indication: URINARY TRACT INFECTION
     Dosage: 3.375 GRAM Q6H IV
     Route: 042
     Dates: start: 20100807, end: 20100809

REACTIONS (1)
  - DYSTONIA [None]
